FAERS Safety Report 24133555 (Version 1)
Quarter: 2024Q3

REPORT INFORMATION
  Report Type: Spontaneous
  Country: US (occurrence: US)
  Receive Date: 20240724
  Receipt Date: 20240724
  Transmission Date: 20241017
  Serious: No
  Sender: SANOFI AVENTIS
  Company Number: US-SA-SAC20240719000379

PATIENT
  Age: 40 Year
  Sex: Male

DRUGS (1)
  1. DUPIXENT [Suspect]
     Active Substance: DUPILUMAB
     Indication: Nasal polyps
     Dosage: 300 MG, Q15D
     Route: 058
     Dates: start: 202404

REACTIONS (2)
  - Blood glucose increased [Unknown]
  - Glucose urine present [Unknown]

NARRATIVE: CASE EVENT DATE: 20240601
